FAERS Safety Report 13395526 (Version 1)
Quarter: 2017Q2

REPORT INFORMATION
  Report Type: Spontaneous
  Country: US (occurrence: US)
  Receive Date: 20170403
  Receipt Date: 20170403
  Transmission Date: 20170830
  Serious: No
  Sender: FDA-Public Use
  Company Number: US-AUROBINDO-AUR-APL-2016-14337

PATIENT
  Sex: Female

DRUGS (1)
  1. SERTRALINE HYDROCHLORIDE TABLETS 25MG [Suspect]
     Active Substance: SERTRALINE HYDROCHLORIDE
     Indication: HYPOAESTHESIA
     Dosage: 20 MG, DAILY
     Route: 048
     Dates: start: 20161112, end: 20161115

REACTIONS (2)
  - Pruritus [Unknown]
  - Dizziness [Unknown]
